FAERS Safety Report 5822751-4 (Version None)
Quarter: 2008Q3

REPORT INFORMATION
  Report Type: 
  Country: None (occurrence: None)
  Receive Date: 20080725
  Receipt Date: 20070913
  Transmission Date: 20090109
  Serious: No
  Sender: FDA-Public Use
  Company Number: US-AMGEN-KDL237142

PATIENT
  Sex: Female
  Weight: 103.5 kg

DRUGS (6)
  1. PROCRIT [Suspect]
     Indication: ANAEMIA
     Route: 058
  2. ASPIRIN [Concomitant]
     Dates: start: 19860101
  3. METFORMIN HCL [Concomitant]
  4. INSULIN [Concomitant]
  5. NPH ILETIN II [Concomitant]
  6. PLAVIX [Concomitant]
     Dates: start: 20010101

REACTIONS (1)
  - FATIGUE [None]
